FAERS Safety Report 15971864 (Version 1)
Quarter: 2019Q1

REPORT INFORMATION
  Report Type: Spontaneous
  Country: US (occurrence: US)
  Receive Date: 20190215
  Receipt Date: 20190215
  Transmission Date: 20190418
  Serious: No
  Sender: FDA-Public Use
  Company Number: US-AMAG PHARMACEUTICALS, INC.-AMAG201805539

PATIENT
  Sex: Female

DRUGS (1)
  1. MAKENA [Suspect]
     Active Substance: HYDROXYPROGESTERONE CAPROATE
     Indication: PREMATURE DELIVERY
     Dosage: 250 MG/ML, WEEKLY
     Route: 030
     Dates: start: 2015

REACTIONS (7)
  - Fatigue [Unknown]
  - Nausea [Unknown]
  - Injection site swelling [Unknown]
  - Diarrhoea [Unknown]
  - Migraine [Unknown]
  - Paraesthesia [Unknown]
  - Injection site pain [Unknown]
